FAERS Safety Report 9988389 (Version 1)
Quarter: 2014Q1

REPORT INFORMATION
  Report Type: Spontaneous
  Country: US (occurrence: US)
  Receive Date: 20140310
  Receipt Date: 20140310
  Transmission Date: 20141002
  Serious: Yes (Death, Other)
  Sender: FDA-Public Use
  Company Number: US-BIOGENIDEC-2014BI020459

PATIENT
  Age: 39 Year
  Sex: Male

DRUGS (1)
  1. AVONEX [Suspect]
     Indication: RELAPSING-REMITTING MULTIPLE SCLEROSIS
     Route: 030

REACTIONS (5)
  - Cardiopulmonary failure [Fatal]
  - Myocardial infarction [Unknown]
  - Hypercholesterolaemia [Unknown]
  - Retinal vascular disorder [Unknown]
  - Hypertension [Unknown]
